FAERS Safety Report 14890021 (Version 2)
Quarter: 2018Q2

REPORT INFORMATION
  Report Type: Spontaneous
  Country: CZ (occurrence: CZ)
  Receive Date: 20180514
  Receipt Date: 20180606
  Transmission Date: 20180711
  Serious: Yes (Other)
  Sender: FDA-Public Use
  Company Number: CZ-TEVA-2018-CZ-891792

PATIENT
  Age: 43 Year
  Sex: Female

DRUGS (4)
  1. PEMETREXED. [Concomitant]
     Active Substance: PEMETREXED
     Dosage: 6 CYCLES
  2. ERLOTINIB [Concomitant]
     Active Substance: ERLOTINIB
     Dosage: 100 MILLIGRAM DAILY;
     Dates: start: 201410
  3. VINORELBINE [Concomitant]
     Active Substance: VINORELBINE\VINORELBINE TARTRATE
     Dosage: 6 CYCLES
     Dates: start: 201204, end: 201207
  4. CISPLATIN. [Suspect]
     Active Substance: CISPLATIN
     Dosage: 6 CYCLES
     Route: 042
     Dates: start: 201204, end: 201207

REACTIONS (3)
  - Haematotoxicity [Unknown]
  - Neutropenia [Unknown]
  - Anaemia [Unknown]

NARRATIVE: CASE EVENT DATE: 2012
